FAERS Safety Report 5858338-7 (Version None)
Quarter: 2008Q3

REPORT INFORMATION
  Report Type: 
  Country: None (occurrence: None)
  Receive Date: 20080826
  Receipt Date: 20080818
  Transmission Date: 20090109
  Serious: Yes (Hospitalization)
  Sender: FDA-Public Use
  Company Number: PHHY2008CA18635

PATIENT
  Age: 52 Year
  Sex: Male

DRUGS (1)
  1. VOLTAREN [Suspect]
     Dosage: 200MG PER DAY
     Route: 048

REACTIONS (9)
  - ABASIA [None]
  - BLOOD PRESSURE INCREASED [None]
  - COMA [None]
  - HAEMORRHAGIC STROKE [None]
  - HEMIPLEGIA [None]
  - MUSCLE SPASTICITY [None]
  - PAIN [None]
  - THROMBOSIS [None]
  - WHEELCHAIR USER [None]
